FAERS Safety Report 6480662-8 (Version None)
Quarter: 2009Q4

REPORT INFORMATION
  Report Type: 
  Country: None (occurrence: None)
  Receive Date: 20091203
  Receipt Date: 20091119
  Transmission Date: 20100525
  Serious: Yes (Hospitalization)
  Sender: FDA-Public Use
  Company Number: 2009US000044

PATIENT
  Age: 46 Year
  Sex: Male

DRUGS (3)
  1. ENTEREG [Suspect]
     Indication: POSTOPERATIVE ILEUS
     Dosage: 12 MG; PO
     Route: 048
     Dates: start: 20091012, end: 20091012
  2. ENTEROCORT [Concomitant]
  3. CELEXA [Concomitant]

REACTIONS (2)
  - ANASTOMOTIC LEAK [None]
  - WOUND SECRETION [None]
